FAERS Safety Report 4917420-9 (Version None)
Quarter: 2006Q1

REPORT INFORMATION
  Report Type: 
  Country: None (occurrence: None)
  Receive Date: 20060221
  Receipt Date: 20050916
  Transmission Date: 20060701
  Serious: Yes (Hospitalization, Disabling)
  Sender: FDA-Public Use
  Company Number: US-MERCK-0509USA02751

PATIENT
  Age: 68 Year
  Sex: Female
  Weight: 84 kg

DRUGS (1)
  1. VIOXX [Suspect]
     Route: 048
     Dates: start: 20000801, end: 20040401

REACTIONS (5)
  - ARTHRALGIA [None]
  - CORONARY ARTERY DISEASE [None]
  - ROTATOR CUFF SYNDROME [None]
  - TRANSIENT ISCHAEMIC ATTACK [None]
  - VARICOSE VEIN [None]
